FAERS Safety Report 24167171 (Version 3)
Quarter: 2024Q3

REPORT INFORMATION
  Report Type: Report from Study
  Country: CO (occurrence: CO)
  Receive Date: 20240802
  Receipt Date: 20240816
  Transmission Date: 20241017
  Serious: Yes (Hospitalization, Other)
  Sender: BAYER
  Company Number: CO-BAYER-2024A107535

PATIENT
  Age: 72 Year
  Sex: Female

DRUGS (2)
  1. ADEMPAS [Suspect]
     Active Substance: RIOCIGUAT
     Indication: Pulmonary hypertension
     Dosage: 2.5 MG, Q8HR
     Route: 048
     Dates: start: 20211212
  2. OXYGEN [Concomitant]
     Active Substance: OXYGEN

REACTIONS (8)
  - Influenza [Not Recovered/Not Resolved]
  - Gastroenteritis [Recovered/Resolved]
  - Coagulopathy [Recovered/Resolved]
  - Pneumonia [Recovered/Resolved]
  - Lacrimation increased [Recovered/Resolved]
  - Productive cough [Recovered/Resolved]
  - Diarrhoea [Not Recovered/Not Resolved]
  - Mucosal inflammation [None]

NARRATIVE: CASE EVENT DATE: 20240701
